FAERS Safety Report 5972604-6 (Version None)
Quarter: 2008Q4

REPORT INFORMATION
  Report Type: 
  Country: None (occurrence: None)
  Receive Date: 20081126
  Receipt Date: 20081126
  Transmission Date: 20090506
  Serious: Yes (Life-Threatening, Other)
  Sender: FDA-Public Use
  Company Number: None

PATIENT
  Age: 50 Year
  Sex: Female
  Weight: 81.6475 kg

DRUGS (1)
  1. PROAIR HFA [Suspect]
     Indication: ASTHMA
     Dosage: 1 TO 2 PUFFS INHAL
     Route: 055
     Dates: start: 20081018, end: 20081022

REACTIONS (16)
  - ANAPHYLACTIC REACTION [None]
  - ASTHMA [None]
  - CHEST DISCOMFORT [None]
  - CHEST PAIN [None]
  - CONDITION AGGRAVATED [None]
  - COUGH [None]
  - DRUG INTOLERANCE [None]
  - ILL-DEFINED DISORDER [None]
  - INFLAMMATION [None]
  - NASAL DISCOMFORT [None]
  - NOCTURNAL DYSPNOEA [None]
  - PRODUCT QUALITY ISSUE [None]
  - SLEEP DISORDER [None]
  - THERAPEUTIC RESPONSE UNEXPECTED [None]
  - THROAT IRRITATION [None]
  - URTICARIA [None]
